FAERS Safety Report 6035640-X (Version None)
Quarter: 2009Q1

REPORT INFORMATION
  Report Type: 
  Country: None (occurrence: None)
  Receive Date: 20090113
  Receipt Date: 20090106
  Transmission Date: 20090719
  Serious: Yes (Other)
  Sender: FDA-Public Use
  Company Number: PHEH2007US11292

PATIENT
  Sex: Male
  Weight: 88.435 kg

DRUGS (11)
  1. ZOMETA [Suspect]
     Indication: PROSTATE CANCER
     Dosage: 4 MG, UNK
     Dates: start: 20051111, end: 20070401
  2. ZOMETA [Suspect]
     Indication: METASTASES TO BONE
  3. CASODEX [Concomitant]
     Dosage: 50 MG, QD
     Dates: start: 20050101
  4. LUPRON [Concomitant]
     Dosage: 30MG
     Dates: start: 20050101
  5. ATENOLOL [Concomitant]
  6. HYDROCHLOROTHIAZIDE [Concomitant]
  7. PERCOCET [Concomitant]
  8. NILANDRON [Concomitant]
     Dosage: UNK
     Dates: start: 20080313
  9. CALCIUM [Concomitant]
     Dosage: UNK
     Dates: start: 20050101
  10. VITAMIN D [Concomitant]
     Dosage: UNK
     Dates: start: 20050101
  11. FLOMAX [Concomitant]

REACTIONS (25)
  - ANXIETY [None]
  - BONE DISORDER [None]
  - DECREASED INTEREST [None]
  - DEFORMITY [None]
  - DISCOMFORT [None]
  - EMOTIONAL DISTRESS [None]
  - GYNAECOMASTIA [None]
  - HERNIA REPAIR [None]
  - HERPES ZOSTER [None]
  - HIATUS HERNIA [None]
  - HOT FLUSH [None]
  - HYPERTENSION [None]
  - INJURY [None]
  - LEUKOPENIA [None]
  - LIFE EXPECTANCY SHORTENED [None]
  - METASTATIC NEOPLASM [None]
  - NEPHROLITHIASIS [None]
  - NOCTURIA [None]
  - OSTEONECROSIS [None]
  - PAIN [None]
  - PAIN IN JAW [None]
  - RENAL DISORDER [None]
  - THROMBOCYTOPENIA [None]
  - TOOTH EXTRACTION [None]
  - WEIGHT DECREASED [None]
